FAERS Safety Report 5144090-X (Version None)
Quarter: 2006Q4

REPORT INFORMATION
  Report Type: 
  Country: None (occurrence: None)
  Receive Date: 20061106
  Receipt Date: 20061031
  Transmission Date: 20070319
  Serious: Yes (Hospitalization)
  Sender: FDA-Public Use
  Company Number: PL-GLAXOSMITHKLINE-B0445177A

PATIENT
  Age: 12 Year
  Sex: Female
  Weight: 36 kg

DRUGS (1)
  1. AUGMENTIN '125' [Suspect]
     Indication: PHARYNGITIS
     Dosage: 375MG THREE TIMES PER DAY
     Dates: start: 20060905, end: 20060910

REACTIONS (4)
  - ABDOMINAL PAIN [None]
  - DIARRHOEA [None]
  - DIARRHOEA HAEMORRHAGIC [None]
  - VOMITING [None]
